FAERS Safety Report 9396204 (Version 1)
Quarter: 2013Q3

REPORT INFORMATION
  Report Type: Spontaneous
  Country: CN (occurrence: CN)
  Receive Date: 20130711
  Receipt Date: 20130711
  Transmission Date: 20140515
  Serious: Yes (Other)
  Sender: FDA-Public Use
  Company Number: CN-BAXTER-2013BAX026835

PATIENT
  Sex: 0

DRUGS (7)
  1. QIFUMEI [Suspect]
     Indication: FOETAL EXPOSURE TIMING UNSPECIFIED
     Route: 064
  2. PROPOFOL [Suspect]
     Indication: FOETAL EXPOSURE TIMING UNSPECIFIED
     Route: 064
  3. FENTANYL [Suspect]
     Indication: FOETAL EXPOSURE TIMING UNSPECIFIED
     Route: 064
  4. SUCCINYLCHOLINE [Suspect]
     Indication: FOETAL EXPOSURE TIMING UNSPECIFIED
     Route: 064
  5. NITROPRUSSIDE [Suspect]
     Indication: FOETAL EXPOSURE TIMING UNSPECIFIED
     Dosage: 0.01-1.0 MICROGRAMS/KG/MIN
     Route: 064
  6. NITROGLYCERIN [Suspect]
     Indication: FOETAL EXPOSURE TIMING UNSPECIFIED
     Dosage: UNSPECIFIED BOLUSES
     Route: 064
  7. NOREPINEPHRINE [Suspect]
     Indication: FOETAL EXPOSURE TIMING UNSPECIFIED
     Route: 064

REACTIONS (2)
  - Foetal exposure during pregnancy [Unknown]
  - Premature baby [Unknown]
